FAERS Safety Report 10481931 (Version 1)
Quarter: 2014Q3

REPORT INFORMATION
  Report Type: Spontaneous
  Country: US (occurrence: US)
  Receive Date: 20140929
  Receipt Date: 20140929
  Transmission Date: 20150326
  Serious: Yes (Other)
  Sender: FDA-Public Use
  Company Number: PHHY2014US123495

PATIENT
  Age: 38 Year
  Sex: Male

DRUGS (4)
  1. BUPRENORPHINE W/NALOXONE [Suspect]
     Active Substance: BUPRENORPHINE HYDROCHLORIDE\NALOXONE HYDROCHLORIDE
     Dosage: 10 MG, QD
     Route: 060
  2. DIACETYLMORPHINE [Suspect]
     Active Substance: DIACETYLMORPHINE
  3. GABAPENTIN. [Suspect]
     Active Substance: GABAPENTIN
     Dosage: 2400 MG, UNK
  4. QUETIAPINE [Suspect]
     Active Substance: QUETIAPINE
     Dosage: 1000 MG, UNK

REACTIONS (3)
  - Intentional product misuse [Unknown]
  - Poisoning [Unknown]
  - Euphoric mood [Unknown]
